FAERS Safety Report 18210184 (Version 4)
Quarter: 2021Q2

REPORT INFORMATION
  Report Type: Report from Study
  Country: US (occurrence: US)
  Receive Date: 20200829
  Receipt Date: 20210415
  Transmission Date: 20210717
  Serious: Yes (Other)
  Sender: FDA-Public Use
  Company Number: NVSC2020US234171

PATIENT
  Sex: Female

DRUGS (1)
  1. TASIGNA [Suspect]
     Active Substance: NILOTINIB
     Indication: PRODUCT USED FOR UNKNOWN INDICATION
     Dosage: 50 MG, QD
     Route: 048

REACTIONS (7)
  - Post procedural complication [Unknown]
  - Loss of consciousness [Unknown]
  - Cardiac disorder [Unknown]
  - Chest pain [Unknown]
  - Skin reaction [Unknown]
  - Abdominal discomfort [Unknown]
  - Skin disorder [Unknown]
